FAERS Safety Report 6256435-8 (Version None)
Quarter: 2009Q2

REPORT INFORMATION
  Report Type: 
  Country: None (occurrence: None)
  Receive Date: 20090630
  Receipt Date: 20090630
  Transmission Date: 20091009
  Serious: No
  Sender: FDA-Public Use
  Company Number: None

PATIENT
  Sex: Female
  Weight: 76.2043 kg

DRUGS (1)
  1. HYDROCHLOROTHIAZIDE [Suspect]
     Indication: HYPERTENSION
     Dosage: 1 CAPSULE ONCE PO
     Route: 048
     Dates: start: 20090402, end: 20090627

REACTIONS (3)
  - DIZZINESS [None]
  - HYPERHIDROSIS [None]
  - SWELLING FACE [None]
